FAERS Safety Report 24053780 (Version 1)
Quarter: 2024Q3

REPORT INFORMATION
  Report Type: Spontaneous
  Country: ES (occurrence: None)
  Receive Date: 20240705
  Receipt Date: 20240705
  Transmission Date: 20241017
  Serious: Yes (Other)
  Sender: ASTRAZENECA
  Company Number: 2024A151422

PATIENT
  Sex: Female

DRUGS (1)
  1. KOSELUGO [Suspect]
     Active Substance: SELUMETINIB
     Indication: Neurofibromatosis
     Route: 048

REACTIONS (6)
  - Neurofibroma [Unknown]
  - Condition aggravated [Unknown]
  - Balance disorder [Unknown]
  - Pain [Unknown]
  - Mobility decreased [Unknown]
  - Product dose omission issue [Unknown]
